FAERS Safety Report 8433084-4 (Version None)
Quarter: 2012Q2

REPORT INFORMATION
  Report Type: 
  Country: None (occurrence: None)
  Receive Date: 20120323
  Receipt Date: 20110810
  Transmission Date: 20120825
  Serious: Yes (Disabling, Other)
  Sender: FDA-Public Use
  Company Number: 163-21880-11072147

PATIENT
  Age: 58 Year
  Sex: Female

DRUGS (2)
  1. REVLIMID [Suspect]
     Indication: MULTIPLE MYELOMA
     Dosage: 25 MG, AT BEDTIME DAYS 1-21 EVERY 28 DAYS, PO
     Route: 048
  2. LIPITOR [Concomitant]

REACTIONS (4)
  - RASH GENERALISED [None]
  - FATIGUE [None]
  - DIZZINESS [None]
  - SYNCOPE [None]
